FAERS Safety Report 5115877-4 (Version None)
Quarter: 2006Q3

REPORT INFORMATION
  Report Type: 
  Country: None (occurrence: None)
  Receive Date: 20060927
  Receipt Date: 20060918
  Transmission Date: 20061208
  Serious: Yes (Other)
  Sender: FDA-Public Use
  Company Number: PHBS2006FI14345

PATIENT
  Age: 90 Year
  Sex: Male

DRUGS (2)
  1. ZOMETA [Suspect]
     Indication: MULTIPLE MYELOMA
     Route: 065
     Dates: start: 20050901
  2. PREDNISONE [Suspect]
     Route: 065
     Dates: start: 20050901

REACTIONS (2)
  - DENTAL PROSTHESIS USER [None]
  - OSTEONECROSIS [None]
